FAERS Safety Report 5098846-2 (Version None)
Quarter: 2006Q3

REPORT INFORMATION
  Report Type: 
  Country: None (occurrence: None)
  Receive Date: 20060907
  Receipt Date: 20060830
  Transmission Date: 20061208
  Serious: Yes (Disabling)
  Sender: FDA-Public Use
  Company Number: FR-ROCHE-461515

PATIENT
  Age: 49 Year
  Sex: Female
  Weight: 58 kg

DRUGS (5)
  1. COPEGUS [Suspect]
     Route: 048
     Dates: start: 20050115, end: 20050815
  2. LEXOMIL [Suspect]
     Indication: ANXIETY
     Route: 048
  3. PEGASYS [Suspect]
     Route: 058
     Dates: start: 20050115, end: 20050815
  4. DAFALGAN [Suspect]
     Route: 048
  5. NORSET [Suspect]
     Route: 048

REACTIONS (1)
  - LIVIDITY [None]
